FAERS Safety Report 5150003-7 (Version None)
Quarter: 2006Q4

REPORT INFORMATION
  Report Type: 
  Country: None (occurrence: None)
  Receive Date: 20060918
  Receipt Date: 20060526
  Transmission Date: 20070319
  Serious: Yes (Other)
  Sender: FDA-Public Use
  Company Number: US-JNJFOC-20060506530

PATIENT
  Age: 62 Year
  Sex: Male
  Weight: 66.2252 kg

DRUGS (3)
  1. TOPAMAX [Suspect]
     Indication: CONVULSION PROPHYLAXIS
     Dosage: ORAL
     Route: 048
     Dates: start: 20060101, end: 20060509
  2. TEMODAR [Suspect]
     Indication: OLIGODENDROGLIOMA
     Dosage: 240 MG , IN 1 DAY, ORAL
     Route: 048
     Dates: start: 20060103, end: 20060501
  3. VICODIN [Concomitant]

REACTIONS (2)
  - ABNORMAL SENSATION IN EYE [None]
  - VISION BLURRED [None]
